FAERS Safety Report 24006355 (Version 1)
Quarter: 2024Q2

REPORT INFORMATION
  Report Type: Spontaneous
  Country: MX (occurrence: MX)
  Receive Date: 20240624
  Receipt Date: 20240624
  Transmission Date: 20240716
  Serious: Yes (Death)
  Sender: FDA-Public Use
  Company Number: MX-ROCHE-10000006113

PATIENT
  Age: 87 Year
  Sex: Female
  Weight: 45 kg

DRUGS (2)
  1. TOCILIZUMAB [Suspect]
     Active Substance: TOCILIZUMAB
     Indication: Rheumatoid arthritis
     Route: 042
     Dates: start: 20240506, end: 20240506
  2. DEFLAZACORT [Concomitant]
     Active Substance: DEFLAZACORT
     Dosage: DOSE AND FREQUENCY WERE NOT REPORTED

REACTIONS (1)
  - Death [Fatal]

NARRATIVE: CASE EVENT DATE: 20240607
